FAERS Safety Report 25192283 (Version 1)
Quarter: 2025Q2

REPORT INFORMATION
  Report Type: Spontaneous
  Country: US (occurrence: None)
  Receive Date: 20250414
  Receipt Date: 20250414
  Transmission Date: 20250716
  Serious: Yes (Other)
  Sender: FDA-CTU
  Company Number: None

PATIENT
  Age: 36 Year
  Sex: Female
  Weight: 100.35 kg

DRUGS (2)
  1. EPINEPHRINE\LIDOCAINE [Suspect]
     Active Substance: EPINEPHRINE\LIDOCAINE
     Indication: Surgery
     Route: 058
     Dates: start: 20250324, end: 20250324
  2. BUPIVACAINE [Suspect]
     Active Substance: BUPIVACAINE
     Indication: Surgery
     Route: 058
     Dates: start: 20250324, end: 20250324

REACTIONS (4)
  - Rash erythematous [None]
  - Rash papular [None]
  - Rash pruritic [None]
  - Product quality issue [None]

NARRATIVE: CASE EVENT DATE: 20250328
